FAERS Safety Report 6145228-8 (Version None)
Quarter: 2009Q2

REPORT INFORMATION
  Report Type: 
  Country: None (occurrence: None)
  Receive Date: 20090406
  Receipt Date: 20090326
  Transmission Date: 20091009
  Serious: Yes (Other)
  Sender: FDA-Public Use
  Company Number: JP-SANOFI-SYNTHELABO-A01200902695

PATIENT
  Age: 84 Year
  Sex: Female

DRUGS (2)
  1. MYSLEE [Suspect]
     Indication: INSOMNIA
     Dosage: TOOK EITHER A HALF OR QUARTER OF 10 MG OF ZOLPIDEM
     Route: 048
     Dates: start: 20040101, end: 20090203
  2. MYSLEE [Suspect]
     Route: 048
     Dates: start: 20090204, end: 20090204

REACTIONS (3)
  - AMNESIA [None]
  - DELIRIUM [None]
  - PORIOMANIA [None]
